FAERS Safety Report 11174923 (Version 1)
Quarter: 2015Q2

REPORT INFORMATION
  Report Type: Spontaneous
  Country: US (occurrence: None)
  Receive Date: 20150608
  Receipt Date: 20150608
  Transmission Date: 20150821
  Serious: Yes (Other)
  Sender: FDA-Public Use
  Company Number: None

PATIENT
  Age: 36 Year
  Sex: Female
  Weight: 56.7 kg

DRUGS (5)
  1. ICY HOT MEDICATED NO MESS APPLICATOR [Suspect]
     Active Substance: MENTHOL
     Indication: ARTHRALGIA
     Dosage: 1 X ROLL ON APPLICATION ONCE DAILY APPLIED TO A SURFACE, USUALLY THE SKIN
     Route: 061
     Dates: start: 20150604, end: 20150604
  2. CEPHALEXIN. [Concomitant]
     Active Substance: CEPHALEXIN
  3. ICY HOT MEDICATED NO MESS APPLICATOR [Suspect]
     Active Substance: MENTHOL
     Indication: JOINT STIFFNESS
     Dosage: 1 X ROLL ON APPLICATION ONCE DAILY APPLIED TO A SURFACE, USUALLY THE SKIN
     Route: 061
     Dates: start: 20150604, end: 20150604
  4. PROBIOTICS [Concomitant]
     Active Substance: PROBIOTICS NOS
  5. VITAMIN D [Concomitant]
     Active Substance: CHOLECALCIFEROL

REACTIONS (4)
  - Application site erythema [None]
  - Application site warmth [None]
  - Application site pain [None]
  - Application site inflammation [None]

NARRATIVE: CASE EVENT DATE: 20150604
